FAERS Safety Report 14109998 (Version 1)
Quarter: 2017Q4

REPORT INFORMATION
  Report Type: Spontaneous
  Country: US (occurrence: US)
  Receive Date: 20171020
  Receipt Date: 20171020
  Transmission Date: 20180321
  Serious: No
  Sender: FDA-Public Use
  Company Number: US-TEVA-721326USA

PATIENT
  Age: 38 Year
  Sex: Female
  Weight: 77 kg

DRUGS (1)
  1. SPRINTEC [Suspect]
     Active Substance: ETHINYL ESTRADIOL\NORGESTIMATE
     Indication: CONTRACEPTION
     Dates: start: 20161209

REACTIONS (8)
  - Abdominal pain upper [Unknown]
  - Fear of pregnancy [Unknown]
  - Malaise [Unknown]
  - Vomiting [Unknown]
  - Vision blurred [Unknown]
  - Asthenia [Unknown]
  - Nervousness [Unknown]
  - Palpitations [Unknown]

NARRATIVE: CASE EVENT DATE: 20161210
